FAERS Safety Report 5042149-9 (Version None)
Quarter: 2006Q2

REPORT INFORMATION
  Report Type: 
  Country: None (occurrence: None)
  Receive Date: 20060627
  Receipt Date: 20060608
  Transmission Date: 20061013
  Serious: Yes (Other)
  Sender: FDA-Public Use
  Company Number: USA031151682

PATIENT
  Age: 73 Year
  Sex: Female
  Weight: 63.4 kg

DRUGS (8)
  1. EVISTA [Suspect]
     Indication: OSTEOPOROSIS
     Dosage: SEE IMAGE
     Route: 048
     Dates: start: 20000901
  2. FORTEO [Suspect]
     Indication: OSTEOPOROSIS
     Dosage: SUBCUTANEOUS
     Route: 058
     Dates: start: 20050805
  3. FOSAMAX [Concomitant]
  4. LOPRESSOR [Concomitant]
  5. MAXZIDE [Concomitant]
  6. PREDNISONE [Concomitant]
  7. CALTRATE (CALCIUM CARBONATE) [Concomitant]
  8. FORTEO [Concomitant]

REACTIONS (12)
  - ACTIVITIES OF DAILY LIVING IMPAIRED [None]
  - BACK PAIN [None]
  - CHOLECYSTECTOMY [None]
  - GASTRIC DISORDER [None]
  - HOT FLUSH [None]
  - MUSCLE FATIGUE [None]
  - MUSCLE SPASMS [None]
  - ODYNOPHAGIA [None]
  - OESOPHAGEAL STENOSIS [None]
  - PATHOLOGICAL FRACTURE [None]
  - PHARYNGOLARYNGEAL PAIN [None]
  - THORACIC VERTEBRAL FRACTURE [None]
